FAERS Safety Report 5046755-7 (Version None)
Quarter: 2006Q3

REPORT INFORMATION
  Report Type: 
  Country: None (occurrence: None)
  Receive Date: 20060705
  Receipt Date: 20060705
  Transmission Date: 20061208
  Serious: Yes (Other)
  Sender: FDA-Public Use
  Company Number: None

PATIENT
  Age: 51 Year
  Sex: Female
  Weight: 82.5547 kg

DRUGS (11)
  1. ETANERCEPT 50 MG [Suspect]
     Indication: ANKYLOSING SPONDYLITIS
     Dosage: 50 MG PREFILLED CONTINUES 50 M WEEKLY SQ
     Route: 058
     Dates: start: 20050401, end: 20060130
  2. ENBREL [Concomitant]
  3. PREVACID [Concomitant]
  4. SYNTHROID [Concomitant]
  5. NORFLEX [Concomitant]
  6. ULTRACET [Concomitant]
  7. ZOCOR [Concomitant]
  8. MIACALCIN [Concomitant]
  9. WELLBUTRIN SR [Concomitant]
  10. VITAMIN D [Concomitant]
  11. CALCIUM GLUCONATE [Concomitant]

REACTIONS (7)
  - BACTERIA SPUTUM IDENTIFIED [None]
  - COUGH [None]
  - LUNG INFILTRATION [None]
  - MYCOBACTERIUM AVIUM COMPLEX INFECTION [None]
  - NIGHT SWEATS [None]
  - PYREXIA [None]
  - THERAPY NON-RESPONDER [None]
